FAERS Safety Report 18123518 (Version 1)
Quarter: 2020Q3

REPORT INFORMATION
  Report Type: Spontaneous
  Country: US (occurrence: US)
  Receive Date: 20200806
  Receipt Date: 20200806
  Transmission Date: 20201103
  Serious: No
  Sender: FDA-Public Use
  Company Number: None

PATIENT
  Age: 42 Year
  Sex: Male
  Weight: 102 kg

DRUGS (1)
  1. NIFEDIPINE (NIFEDIPINE (QV?CC) 30MG TAB, SA) [Suspect]
     Active Substance: NIFEDIPINE
     Indication: HYPERTENSION
     Route: 048
     Dates: start: 20150715, end: 20170929

REACTIONS (2)
  - Gingival hypertrophy [None]
  - Loose tooth [None]

NARRATIVE: CASE EVENT DATE: 20171005
